FAERS Safety Report 24221816 (Version 2)
Quarter: 2024Q3

REPORT INFORMATION
  Report Type: Spontaneous
  Country: CN (occurrence: CN)
  Receive Date: 20240819
  Receipt Date: 20240920
  Transmission Date: 20241017
  Serious: Yes (Other)
  Sender: BEIGENE
  Company Number: CN-BEIGENE-BGN-2024-012629

PATIENT

DRUGS (10)
  1. TISLELIZUMAB [Suspect]
     Active Substance: TISLELIZUMAB
     Indication: Squamous cell carcinoma of lung
     Dosage: 200 MILLIGRAM
     Route: 041
     Dates: start: 20240316
  2. TISLELIZUMAB [Suspect]
     Active Substance: TISLELIZUMAB
     Dosage: 200 MILLIGRAM
     Route: 041
     Dates: start: 20240408
  3. TISLELIZUMAB [Suspect]
     Active Substance: TISLELIZUMAB
     Dosage: 200 MILLIGRAM
     Route: 041
     Dates: start: 20240510
  4. TISLELIZUMAB [Suspect]
     Active Substance: TISLELIZUMAB
     Dosage: 200 MILLIGRAM
     Route: 041
     Dates: start: 20240709
  5. PACLITAXEL [Concomitant]
     Active Substance: PACLITAXEL
     Indication: Squamous cell carcinoma of lung
     Dosage: 350 MILLIGRAM
     Route: 041
     Dates: start: 20240316
  6. PACLITAXEL [Concomitant]
     Active Substance: PACLITAXEL
     Dosage: 350 MILLIGRAM
     Route: 041
     Dates: start: 20240408
  7. PACLITAXEL [Concomitant]
     Active Substance: PACLITAXEL
     Dosage: 350 MILLIGRAM
     Route: 041
     Dates: start: 20240510
  8. CARBOPLATIN [Concomitant]
     Active Substance: CARBOPLATIN
     Indication: Squamous cell carcinoma of lung
     Dosage: 500 MILLIGRAM
     Route: 041
     Dates: start: 20240316
  9. CARBOPLATIN [Concomitant]
     Active Substance: CARBOPLATIN
     Dosage: 500 MILLIGRAM
     Route: 041
     Dates: start: 20240408
  10. CARBOPLATIN [Concomitant]
     Active Substance: CARBOPLATIN
     Dosage: 500 MILLIGRAM
     Route: 041
     Dates: start: 20240510

REACTIONS (2)
  - Myasthenia gravis [Recovering/Resolving]
  - Gastrointestinal haemorrhage [Recovering/Resolving]
